FAERS Safety Report 9331031 (Version 1)
Quarter: 2013Q2

REPORT INFORMATION
  Report Type: Spontaneous
  Country: US (occurrence: None)
  Receive Date: 20130531
  Receipt Date: 20130531
  Transmission Date: 20140414
  Serious: Yes (Death)
  Sender: FDA-Public Use
  Company Number: 1732899

PATIENT
  Sex: Male

DRUGS (2)
  1. (MORPHINE SULPHATE) [Suspect]
     Indication: PRODUCT USED FOR UNKNOWN INDICATION
  2. SALT [Concomitant]
     Indication: PRODUCT USED FOR UNKNOWN INDICATION

REACTIONS (1)
  - Drug abuse [None]
